FAERS Safety Report 17866407 (Version 7)
Quarter: 2021Q2

REPORT INFORMATION
  Report Type: Spontaneous
  Country: US (occurrence: US)
  Receive Date: 20200605
  Receipt Date: 20210419
  Transmission Date: 20210717
  Serious: No
  Sender: FDA-Public Use
  Company Number: US-DSJP-DSU-2020-115383

PATIENT
  Sex: Female

DRUGS (3)
  1. TURALIO [Suspect]
     Active Substance: PEXIDARTINIB HYDROCHLORIDE
     Indication: SYNOVITIS
     Dosage: 400 MG, BID
     Route: 048
     Dates: start: 20200430
  2. TURALIO [Suspect]
     Active Substance: PEXIDARTINIB HYDROCHLORIDE
     Dosage: 400 MG, BID
     Route: 048
     Dates: start: 20200515
  3. TURALIO [Suspect]
     Active Substance: PEXIDARTINIB HYDROCHLORIDE
     Dosage: 200 MG, QD
     Route: 048
     Dates: start: 20200515

REACTIONS (5)
  - Nausea [Recovered/Resolved]
  - Neuropathy peripheral [Recovered/Resolved]
  - Hair colour changes [Not Recovered/Not Resolved]
  - Incorrect dose administered [Not Recovered/Not Resolved]
  - Intraocular pressure increased [Recovered/Resolved]

NARRATIVE: CASE EVENT DATE: 2020
